FAERS Safety Report 9575930 (Version 1)
Quarter: 2013Q4

REPORT INFORMATION
  Report Type: Spontaneous
  Country: US (occurrence: US)
  Receive Date: 20131001
  Receipt Date: 20131001
  Transmission Date: 20140711
  Serious: No
  Sender: FDA-Public Use
  Company Number: US-AMGEN-USASP2013000418

PATIENT
  Age: 48 Year
  Sex: Female

DRUGS (3)
  1. ENBREL [Suspect]
     Indication: RHEUMATOID ARTHRITIS
     Dosage: 50 MG, QWK
     Dates: start: 20120319, end: 201209
  2. ORENCIA [Concomitant]
     Dosage: UNK
     Dates: start: 201210, end: 201211
  3. SIMPONI [Concomitant]
     Dosage: UNK
     Dates: start: 20121201

REACTIONS (1)
  - Arthritis [Not Recovered/Not Resolved]
